FAERS Safety Report 19077088 (Version 1)
Quarter: 2021Q1

REPORT INFORMATION
  Report Type: Spontaneous
  Country: RO (occurrence: RO)
  Receive Date: 20210331
  Receipt Date: 20210331
  Transmission Date: 20210420
  Serious: Yes (Other)
  Sender: FDA-Public Use
  Company Number: RO-ROCHE-2797554

PATIENT
  Age: 66 Year
  Sex: Male

DRUGS (5)
  1. CARBOPLATIN. [Suspect]
     Active Substance: CARBOPLATIN
     Indication: LUNG NEOPLASM
     Route: 065
     Dates: start: 201905, end: 202004
  2. AVASTIN [Suspect]
     Active Substance: BEVACIZUMAB
     Indication: LUNG NEOPLASM
     Route: 065
     Dates: start: 201905, end: 202004
  3. TECENTRIQ [Suspect]
     Active Substance: ATEZOLIZUMAB
     Indication: LUNG NEOPLASM
     Route: 041
     Dates: start: 20210222
  4. PEMETREXED. [Suspect]
     Active Substance: PEMETREXED
     Indication: LUNG NEOPLASM
     Route: 065
     Dates: start: 202005, end: 202011
  5. GEMCITABINE. [Suspect]
     Active Substance: GEMCITABINE
     Indication: LUNG NEOPLASM
     Route: 065
     Dates: start: 201905, end: 202004

REACTIONS (1)
  - Neoplasm [Unknown]
